FAERS Safety Report 8973957 (Version 1)
Quarter: 2012Q4

REPORT INFORMATION
  Report Type: Report from Study
  Country: US (occurrence: US)
  Receive Date: 20121218
  Receipt Date: 20121218
  Transmission Date: 20130627
  Serious: Yes (Hospitalization, Other)
  Sender: FDA-Public Use
  Company Number: PHHO2010US05437

PATIENT
  Age: 47 Year
  Sex: Female
  Weight: 152.6 kg

DRUGS (16)
  1. AFINITOR [Suspect]
     Indication: GLIOBLASTOMA MULTIFORME
     Dosage: 5 mg/daily
     Route: 048
     Dates: start: 20090506, end: 20100402
  2. AFINITOR [Suspect]
     Dosage: 5 mg/daily
     Route: 048
     Dates: end: 20100405
  3. AFINITOR [Suspect]
     Dosage: 5 mg/daily
     Route: 048
     Dates: start: 20100405, end: 20100513
  4. TEMOZOLOMIDE [Suspect]
     Indication: GLIOBLASTOMA MULTIFORME
     Dosage: 150 mg, daily
     Route: 048
     Dates: start: 20090206
  5. TEMOZOLOMIDE [Suspect]
     Dosage: 150 mg, daily
     Route: 048
     Dates: end: 20090408
  6. TEMOZOLOMIDE [Suspect]
     Dosage: 150 mg, daily
     Route: 048
     Dates: end: 20100402
  7. TEMOZOLOMIDE [Suspect]
     Dosage: 150 mg, daily
     Route: 048
     Dates: start: 20100405
  8. TEMOZOLOMIDE [Suspect]
     Dosage: 150 mg, daily
     Route: 048
     Dates: end: 20100513
  9. AVASTIN [Suspect]
     Indication: GLIOBLASTOMA MULTIFORME
     Dosage: 725 mg, QW2
     Route: 042
     Dates: start: 20090226
  10. AVASTIN [Suspect]
     Dosage: 725 mg, QW2
     Route: 042
     Dates: end: 20100325
  11. AVASTIN [Suspect]
     Dosage: 725 mg, QW2
     Route: 042
     Dates: end: 20100402
  12. AVASTIN [Suspect]
     Dosage: 725 mg, QW2
     Route: 042
     Dates: start: 20100405, end: 20100513
  13. RADIATION THERAPY [Concomitant]
  14. HYDROCHLOROTHIAZIDE [Concomitant]
     Dosage: 25 mg, UNK
     Route: 048
     Dates: start: 20090807
  15. KEPPRA [Concomitant]
     Dosage: 500 mg, daily
     Route: 048
     Dates: start: 20090130
  16. ATENOLOL [Concomitant]
     Dosage: 25 mg, daily
     Route: 048
     Dates: start: 20090813

REACTIONS (3)
  - Urinary tract infection [Recovered/Resolved]
  - Grand mal convulsion [Recovered/Resolved]
  - Encephalomalacia [Unknown]
